FAERS Safety Report 9927598 (Version 1)
Quarter: 2014Q1

REPORT INFORMATION
  Report Type: Spontaneous
  Country: US (occurrence: US)
  Receive Date: 20140227
  Receipt Date: 20140227
  Transmission Date: 20141002
  Serious: Yes (Hospitalization)
  Sender: FDA-Public Use
  Company Number: US-BIOGENIDEC-2014BI017395

PATIENT
  Age: 59 Year
  Sex: Male

DRUGS (7)
  1. TECFIDERA [Suspect]
     Indication: MULTIPLE SCLEROSIS
     Route: 048
  2. AMBIEN [Concomitant]
  3. BACLOFEN [Concomitant]
  4. LUNESTA [Concomitant]
  5. RITALIN LA [Concomitant]
  6. SINGERS SAVING GRACE THROAT [Concomitant]
  7. SYMBICORT [Concomitant]

REACTIONS (5)
  - Influenza [Unknown]
  - Nausea [Unknown]
  - Vomiting [Unknown]
  - Diarrhoea [Unknown]
  - Multiple sclerosis relapse [Unknown]
